FAERS Safety Report 8577853-9 (Version None)
Quarter: 2012Q3

REPORT INFORMATION
  Report Type: 
  Country: None (occurrence: None)
  Receive Date: 20120808
  Receipt Date: 20120731
  Transmission Date: 20120928
  Serious: No
  Sender: FDA-Public Use
  Company Number: US-BIOGENIDEC-2012BI028582

PATIENT
  Age: 35 Year
  Sex: Female

DRUGS (2)
  1. TYSABRI [Suspect]
     Indication: MULTIPLE SCLEROSIS
     Route: 042
     Dates: start: 20091107, end: 20110104
  2. TYSABRI [Suspect]
     Route: 042
     Dates: start: 20120731

REACTIONS (4)
  - INCREASED TENDENCY TO BRUISE [None]
  - FACE INJURY [None]
  - CONTUSION [None]
  - FALL [None]
